FAERS Safety Report 14576983 (Version 2)
Quarter: 2018Q2

REPORT INFORMATION
  Report Type: Spontaneous
  Country: CZ (occurrence: CZ)
  Receive Date: 20180227
  Receipt Date: 20180529
  Transmission Date: 20180711
  Serious: Yes (Hospitalization, Other)
  Sender: FDA-Public Use
  Company Number: PHHY2018CZ025812

PATIENT
  Sex: Male

DRUGS (15)
  1. CONCOR COR [Suspect]
     Active Substance: BISOPROLOL FUMARATE
     Indication: CARDIAC FAILURE
     Dosage: 5 MG, UNK
     Route: 065
  2. CONCOR COR [Suspect]
     Active Substance: BISOPROLOL FUMARATE
     Dosage: 1-0-HALF
     Route: 065
  3. ATORVASTATIN [Suspect]
     Active Substance: ATORVASTATIN
     Indication: CARDIAC FAILURE
     Dosage: 10 MG, QHS
     Route: 065
     Dates: start: 200404
  4. FURON [Suspect]
     Active Substance: FUROSEMIDE
     Indication: CARDIAC FAILURE
     Dosage: 40 MG, QD
     Route: 065
  5. HUMULIN R [Concomitant]
     Active Substance: INSULIN HUMAN
     Dosage: 20-8-8 IU
     Route: 058
  6. HUMULIN R [Concomitant]
     Active Substance: INSULIN HUMAN
     Dosage: 8 IU, QD
     Route: 058
  7. AGEN [Suspect]
     Active Substance: AMLODIPINE BESYLATE
     Indication: CARDIAC FAILURE
     Dosage: 10 OT, QD
     Route: 065
     Dates: start: 200404, end: 2004
  8. HUMULIN R [Concomitant]
     Active Substance: INSULIN HUMAN
     Dosage: 16 IU, QHS
     Route: 058
  9. HUMULIN R [Concomitant]
     Active Substance: INSULIN HUMAN
     Dosage: 8 IU, QHS
     Route: 058
  10. HUMULIN R [Concomitant]
     Active Substance: INSULIN HUMAN
     Dosage: 16-8-9 IU
     Route: 058
  11. VEROSPIRON [Suspect]
     Active Substance: SPIRONOLACTONE
     Indication: CARDIAC FAILURE
     Dosage: 25 MG, BID
     Route: 065
  12. HUMULIN R [Concomitant]
     Active Substance: INSULIN HUMAN
     Indication: TYPE 2 DIABETES MELLITUS
     Dosage: 16 IU, QD
     Route: 058
  13. HUMULIN R [Concomitant]
     Active Substance: INSULIN HUMAN
     Dosage: 8 IU, QD
     Route: 058
  14. HUMULIN R [Concomitant]
     Active Substance: INSULIN HUMAN
     Dosage: 20 IU, QD
     Route: 058
  15. HUMULIN N [Concomitant]
     Active Substance: INSULIN HUMAN
     Indication: TYPE 2 DIABETES MELLITUS
     Dosage: 12 IU, QHS
     Route: 058

REACTIONS (3)
  - Dyspnoea [Recovered/Resolved]
  - Hypertension [Unknown]
  - Pulmonary oedema [Recovered/Resolved]

NARRATIVE: CASE EVENT DATE: 2004
